FAERS Safety Report 8237210-1 (Version None)
Quarter: 2012Q1

REPORT INFORMATION
  Report Type: 
  Country: None (occurrence: None)
  Receive Date: 20120327
  Receipt Date: 20120327
  Transmission Date: 20120608
  Serious: Yes (Hospitalization)
  Sender: FDA-Public Use
  Company Number: None

PATIENT
  Sex: Male
  Weight: 8.8 kg

DRUGS (2)
  1. TYLENOL [Concomitant]
     Indication: PYREXIA
     Dosage: 4 ML
     Route: 048
  2. TAMIFLU [Suspect]
     Indication: INFLUENZA VIRUS TEST POSITIVE
     Dosage: 4.5 ML
     Route: 048
     Dates: start: 20120226, end: 20120301

REACTIONS (4)
  - VOMITING [None]
  - INTUSSUSCEPTION [None]
  - HAEMATOCHEZIA [None]
  - UPPER RESPIRATORY TRACT INFECTION [None]
